FAERS Safety Report 13054876 (Version 2)
Quarter: 2017Q1

REPORT INFORMATION
  Report Type: Spontaneous
  Country: US (occurrence: US)
  Receive Date: 20161222
  Receipt Date: 20170124
  Transmission Date: 20170428
  Serious: No
  Sender: FDA-Public Use
  Company Number: US-PFIZER INC-2016582728

PATIENT
  Age: 55 Year
  Sex: Female

DRUGS (10)
  1. PREDNISONE. [Suspect]
     Active Substance: PREDNISONE
     Dosage: UNK
  2. DOXYCYCLINE. [Suspect]
     Active Substance: DOXYCYCLINE
     Dosage: UNK
  3. VALIUM [Suspect]
     Active Substance: DIAZEPAM
     Dosage: UNK
  4. CHANTIX [Suspect]
     Active Substance: VARENICLINE TARTRATE
     Dosage: UNK
  5. ASPIRIN. [Suspect]
     Active Substance: ASPIRIN
     Dosage: UNK
  6. PREMARIN [Suspect]
     Active Substance: ESTROGENS, CONJUGATED
     Dosage: UNK
  7. IBUPROFEN. [Suspect]
     Active Substance: IBUPROFEN
     Dosage: UNK
  8. VARENICLINE [Suspect]
     Active Substance: VARENICLINE
     Dosage: UNK
  9. OXYCODONE [Suspect]
     Active Substance: OXYCODONE
     Dosage: UNK
  10. PENICILLIN /00000901/ [Suspect]
     Active Substance: PENICILLIN G

REACTIONS (1)
  - Drug hypersensitivity [Unknown]
